FAERS Safety Report 10214275 (Version 1)
Quarter: 2014Q2

REPORT INFORMATION
  Report Type: Spontaneous
  Country: US (occurrence: US)
  Receive Date: 20140603
  Receipt Date: 20140603
  Transmission Date: 20141212
  Serious: Yes (Other)
  Sender: FDA-Public Use
  Company Number: US-TEVA-485822USA

PATIENT
  Age: 24 Year
  Sex: Female
  Weight: 77.63 kg

DRUGS (5)
  1. PARAGARD 380A [Suspect]
     Indication: CONTRACEPTION
     Route: 015
     Dates: start: 20140410, end: 20140528
  2. PROZAC [Concomitant]
     Indication: ANXIETY
  3. TOPAMAX [Concomitant]
     Indication: ANXIETY
  4. ESTROGEN NOS [Concomitant]
     Indication: CONTRACEPTION
  5. IMITREX [Concomitant]
     Indication: MIGRAINE

REACTIONS (4)
  - Convulsion [Not Recovered/Not Resolved]
  - Migraine [Recovered/Resolved]
  - Dysmenorrhoea [Recovered/Resolved]
  - Menometrorrhagia [Recovered/Resolved]
